FAERS Safety Report 7885572-7 (Version None)
Quarter: 2011Q4

REPORT INFORMATION
  Report Type: 
  Country: None (occurrence: None)
  Receive Date: 20111102
  Receipt Date: 20110627
  Transmission Date: 20120403
  Serious: No
  Sender: FDA-Public Use
  Company Number: US-AMGEN-USASP2011032783

PATIENT
  Sex: Female

DRUGS (3)
  1. REMICADE [Concomitant]
  2. PREDNISONE [Concomitant]
  3. ENBREL [Suspect]
     Indication: RHEUMATOID ARTHRITIS
     Dosage: 50 MG, QWK
     Dates: start: 20071001

REACTIONS (10)
  - NERVOUSNESS [None]
  - ARTHRALGIA [None]
  - NAUSEA [None]
  - MEMORY IMPAIRMENT [None]
  - APHASIA [None]
  - IRRITABILITY [None]
  - BACK PAIN [None]
  - NECK PAIN [None]
  - VOMITING [None]
  - POOR QUALITY SLEEP [None]
